FAERS Safety Report 12925885 (Version 1)
Quarter: 2016Q4

REPORT INFORMATION
  Report Type: Spontaneous
  Country: ES (occurrence: ES)
  Receive Date: 20161109
  Receipt Date: 20161109
  Transmission Date: 20170207
  Serious: Yes (Other)
  Sender: FDA-Public Use
  Company Number: ES-TOLMAR, INC.-2016ES011771

PATIENT
  Age: 75 Year
  Sex: Male
  Weight: 77 kg

DRUGS (7)
  1. ELIGARD [Suspect]
     Active Substance: LEUPROLIDE ACETATE
     Indication: PROSTATIC ADENOMA
     Dosage: UNK
     Route: 065
     Dates: end: 201606
  2. VESOMNI [Suspect]
     Active Substance: SOLIFENACIN\TAMSULOSIN
     Indication: PROSTATIC ADENOMA
  3. METAMIZOLE [Concomitant]
     Active Substance: METAMIZOLE
     Route: 065
  4. VESOMNI [Suspect]
     Active Substance: SOLIFENACIN\TAMSULOSIN
     Indication: LOWER URINARY TRACT SYMPTOMS
     Dosage: 1 DF, DAILY
     Route: 048
     Dates: start: 20160608, end: 20160919
  5. INDAPAMIDE. [Concomitant]
     Active Substance: INDAPAMIDE
     Route: 065
  6. OMEPRAZOLE. [Concomitant]
     Active Substance: OMEPRAZOLE
     Route: 065
  7. ADIRO [Concomitant]
     Active Substance: ASPIRIN
     Dosage: 100 MG, UNK
     Route: 065

REACTIONS (3)
  - Dry mouth [Recovered/Resolved]
  - Dysphagia [Recovered/Resolved]
  - Off label use [Unknown]

NARRATIVE: CASE EVENT DATE: 201606
